FAERS Safety Report 19991268 (Version 1)
Quarter: 2021Q4

REPORT INFORMATION
  Report Type: Spontaneous
  Country: US (occurrence: US)
  Receive Date: 20211022
  Receipt Date: 20211022
  Transmission Date: 20220303
  Serious: Yes (Hospitalization)
  Sender: FDA-Public Use
  Company Number: None

PATIENT
  Age: 57 Year
  Sex: Female

DRUGS (3)
  1. PIQRAY [Suspect]
     Active Substance: ALPELISIB
     Indication: Breast disorder
     Route: 048
     Dates: start: 202011
  2. FULVESTRANT [Concomitant]
     Active Substance: FULVESTRANT
  3. OXYBUTYNIN [Concomitant]
     Active Substance: OXYBUTYNIN

REACTIONS (4)
  - Vision blurred [None]
  - Vitreous floaters [None]
  - Head discomfort [None]
  - Intervertebral disc protrusion [None]

NARRATIVE: CASE EVENT DATE: 20211013
